FAERS Safety Report 4302244-6 (Version None)
Quarter: 2004Q1

REPORT INFORMATION
  Report Type: 
  Country: None (occurrence: None)
  Receive Date: 20040220
  Receipt Date: 20040206
  Transmission Date: 20041129
  Serious: Yes (Hospitalization, Other)
  Sender: FDA-Public Use
  Company Number: 2003110932

PATIENT
  Age: 48 Year
  Sex: Male

DRUGS (2)
  1. ZITHROMAX [Suspect]
     Indication: PERIODONTITIS
     Dosage: 500 MG ORAL
     Route: 048
     Dates: start: 20030607, end: 20030608
  2. FLURBIPROFEN [Concomitant]

REACTIONS (8)
  - ASTHMA [None]
  - BRONCHOSPASM [None]
  - CHRONIC OBSTRUCTIVE AIRWAYS DISEASE [None]
  - DRUG HYPERSENSITIVITY [None]
  - EMPHYSEMA [None]
  - HYPOXIA [None]
  - NASOPHARYNGITIS [None]
  - PNEUMONIA [None]
